FAERS Safety Report 4468989-2 (Version None)
Quarter: 2004Q4

REPORT INFORMATION
  Report Type: 
  Country: None (occurrence: None)
  Receive Date: 20041004
  Receipt Date: 20041004
  Transmission Date: 20050328
  Serious: Yes (Other)
  Sender: FDA-Public Use
  Company Number: None

PATIENT
  Age: 77 Year
  Sex: Male
  Weight: 115.7 kg

DRUGS (17)
  1. CODEINE [Suspect]
  2. HCTZ 25/TRIAMTERENE 37.5MG [Concomitant]
  3. MYCOPHENOLATE MOFETIL [Concomitant]
  4. CODEINE 30 /ACETAMINOPHEN [Concomitant]
  5. VALACYLOVIR HCL [Concomitant]
  6. OXYBUTYNIN CHLORIDE [Concomitant]
  7. DIPHENHYDRAMINE HCL [Concomitant]
  8. GATIFLOXACIN [Concomitant]
  9. PYRIDOSTIGMINE BROMIDE [Concomitant]
  10. LEVOTHYROXINE SODIUM [Concomitant]
  11. SIMVASTATIN [Concomitant]
  12. CAPTOPTIL [Concomitant]
  13. BIMATOPROST 0.03% OPH SOLN [Concomitant]
  14. ACCU-CHECK COMFORT CURVE-H TEST STRIP [Concomitant]
  15. PYRIDOSTIGMINE BROMIDE [Concomitant]
  16. ALBUTEROL 90/IPRATROP 18 MCG [Concomitant]
  17. FEXOFENADINE HCL [Concomitant]

REACTIONS (2)
  - NAUSEA [None]
  - VOMITING [None]
